FAERS Safety Report 9975230 (Version 1)
Quarter: 2014Q1

REPORT INFORMATION
  Report Type: Report from Study
  Country: US (occurrence: US)
  Receive Date: 20140306
  Receipt Date: 20140306
  Transmission Date: 20141002
  Serious: No
  Sender: FDA-Public Use
  Company Number: US-ABBVIE-13P-163-1161860-00

PATIENT
  Age: 11 Year
  Sex: Male
  Weight: 67.65 kg

DRUGS (5)
  1. HUMIRA [Suspect]
     Indication: PSORIASIS
     Dates: start: 201210
  2. NAPROXEN [Concomitant]
     Indication: ARTHRALGIA
  3. TRIAMCINOLONE [Concomitant]
     Indication: PSORIASIS
  4. ALUVEA [Concomitant]
     Indication: PSORIASIS
  5. UREA [Concomitant]
     Indication: PSORIASIS

REACTIONS (2)
  - Haemoptysis [Recovered/Resolved]
  - Injection site pain [Not Recovered/Not Resolved]
